FAERS Safety Report 7264095-2 (Version None)
Quarter: 2011Q1

REPORT INFORMATION
  Report Type: 
  Country: None (occurrence: None)
  Receive Date: 20110130
  Receipt Date: 20101228
  Transmission Date: 20110831
  Serious: No
  Sender: FDA-Public Use
  Company Number: US-ABBOTT-11P-163-0694654-00

PATIENT
  Sex: Female
  Weight: 109.87 kg

DRUGS (28)
  1. HUMIRA [Suspect]
     Indication: RHEUMATOID ARTHRITIS
     Dates: start: 20101206
  2. ADVAIR [Concomitant]
     Indication: ASTHMA
  3. PROVENTIL-HFA [Concomitant]
     Indication: ASTHMA
  4. METRONIDAZOLE [Concomitant]
     Indication: RASH
  5. FISH OIL [Concomitant]
     Indication: MEDICAL DIET
     Dosage: THREE 1000 CAPSULES A DAY
  6. TRAMADOL HCL [Concomitant]
     Indication: ARTHRALGIA
  7. GLIMEPIRIDE [Concomitant]
     Indication: DIABETES MELLITUS
  8. PROTONIX [Concomitant]
     Indication: GASTROOESOPHAGEAL REFLUX DISEASE
  9. CYCLOBENZAPRINE [Concomitant]
     Indication: INSOMNIA
  10. TRAMADOL HCL [Concomitant]
     Indication: SPINAL COLUMN STENOSIS
  11. NITROSTAT [Concomitant]
     Indication: CHEST PAIN
  12. CINNAMON [Concomitant]
     Indication: PHYTOTHERAPY
  13. MOVE FREE [Concomitant]
     Indication: SUPPLEMENTATION THERAPY
  14. METAMUCIL-2 [Concomitant]
     Indication: MEDICAL DIET
  15. DILTIAZEM HCL [Concomitant]
     Indication: HYPERTENSION
  16. FLUOCINONIDE [Concomitant]
     Indication: RASH
  17. CRANBERRIES [Concomitant]
     Indication: PHYTOTHERAPY
  18. LISINOPRIL [Concomitant]
     Indication: HYPERTENSION
  19. LIPITOR [Concomitant]
     Indication: BLOOD CHOLESTEROL INCREASED
  20. DICYCLOMINE [Concomitant]
     Indication: ABDOMINAL PAIN UPPER
  21. TRAMADOL HCL [Concomitant]
     Indication: OSTEOARTHRITIS
  22. ASPIRIN [Concomitant]
     Indication: TRANSIENT ISCHAEMIC ATTACK
     Dosage: TWO 81MG TABLETS A DAY
  23. CENTRUM SILVER [Concomitant]
     Indication: VITAMIN SUPPLEMENTATION
  24. ATENOLOL [Concomitant]
     Indication: HYPERTENSION
  25. LEVOTHYROXIDE [Concomitant]
     Indication: HYPOTHYROIDISM
  26. CYMBALTA [Concomitant]
     Indication: DEPRESSION
  27. GENERIC ALLEGRA [Concomitant]
     Indication: HYPERSENSITIVITY
  28. BLUEBERRY [Concomitant]
     Indication: PHYTOTHERAPY

REACTIONS (6)
  - OEDEMA PERIPHERAL [None]
  - PAIN IN EXTREMITY [None]
  - ERYTHEMA [None]
  - INFECTION [None]
  - SCRATCH [None]
  - MOBILITY DECREASED [None]
